FAERS Safety Report 6960611-6 (Version None)
Quarter: 2010Q3

REPORT INFORMATION
  Report Type: 
  Country: None (occurrence: None)
  Receive Date: 20100901
  Receipt Date: 20100819
  Transmission Date: 20110219
  Serious: Yes (Other)
  Sender: FDA-Public Use
  Company Number: US-ELI_LILLY_AND_COMPANY-US201008006439

PATIENT
  Age: 56 Year
  Sex: Female

DRUGS (4)
  1. EVISTA [Suspect]
     Dates: start: 20100201, end: 20100601
  2. AMLODIPINE [Concomitant]
  3. SINEMET [Concomitant]
  4. SYNTHROID [Concomitant]

REACTIONS (1)
  - VENOUS OCCLUSION [None]
